FAERS Safety Report 5610542-9 (Version None)
Quarter: 2008Q1

REPORT INFORMATION
  Report Type: 
  Country: None (occurrence: None)
  Receive Date: 20080128
  Receipt Date: 20080116
  Transmission Date: 20080703
  Serious: Yes (Death)
  Sender: FDA-Public Use
  Company Number: 023076

PATIENT
  Age: 62 Year
  Sex: Female

DRUGS (4)
  1. ALPRAZOLAM [Suspect]
     Dosage: ORAL
     Route: 048
  2. VENLAFAXINE HCL [Suspect]
     Dosage: ORAL
     Route: 048
  3. CETIRIZINE HCL [Suspect]
     Dosage: ORAL
     Route: 048
  4. BUPROPION HCL [Suspect]
     Dosage: ORAL
     Route: 048

REACTIONS (2)
  - ACCIDENTAL EXPOSURE [None]
  - DRUG TOXICITY [None]
